FAERS Safety Report 15284890 (Version 3)
Quarter: 2019Q1

REPORT INFORMATION
  Report Type: Spontaneous
  Country: CA (occurrence: CA)
  Receive Date: 20180816
  Receipt Date: 20190326
  Transmission Date: 20190417
  Serious: Yes (Other)
  Sender: FDA-Public Use
  Company Number: CA-PFIZER INC-2018326944

PATIENT
  Age: 6 Year
  Sex: Female
  Weight: 26 kg

DRUGS (15)
  1. CYTARABINE. [Suspect]
     Active Substance: CYTARABINE
     Dosage: 24 MG, UNK
     Route: 042
  2. METHOTREXATE SODIUM. [Suspect]
     Active Substance: METHOTREXATE SODIUM
     Dosage: 12 G, 1X/DAY
     Route: 065
  3. DAUNOMYCIN /00128201/ [Suspect]
     Active Substance: DAUNORUBICIN
     Indication: LEUKAEMIA
     Dosage: 42.8 MG, UNK
     Route: 042
  4. CYCLOPHOSPHAMIDE. [Suspect]
     Active Substance: CYCLOPHOSPHAMIDE
     Dosage: 1620 MG, UNK
     Route: 042
  5. L-ASPARAGINASE [Concomitant]
     Active Substance: ASPARAGINASE
     Dosage: UNK
  6. HYDROCORTISONE SODIUM SUCCINATE [Suspect]
     Active Substance: HYDROCORTISONE SODIUM SUCCINATE
     Indication: LEUKAEMIA
     Dosage: 12 MG, UNK
     Route: 037
  7. METHOTREXATE. [Concomitant]
     Active Substance: METHOTREXATE
     Dosage: UNK
  8. IFOSFAMIDE. [Suspect]
     Active Substance: IFOSFAMIDE
     Indication: LEUKAEMIA
     Dosage: 1.8 G, UNK
     Route: 042
  9. IMATINIB. [Suspect]
     Active Substance: IMATINIB MESYLATE
     Indication: LEUKAEMIA
     Dosage: 300 MG, ONE EVERY ONE DAY
     Route: 048
  10. CYTARABINE. [Suspect]
     Active Substance: CYTARABINE
     Indication: LEUKAEMIA
     Dosage: 24 MG, UNK
     Route: 037
  11. METHOTREXATE SODIUM. [Suspect]
     Active Substance: METHOTREXATE SODIUM
     Indication: LEUKAEMIA
     Dosage: 12 MG, UNK
     Route: 037
  12. ETOPOSIDE. [Suspect]
     Active Substance: ETOPOSIDE
     Indication: LEUKAEMIA
     Dosage: 96 MG, UNK
     Route: 042
  13. CYCLOPHOSPHAMIDE. [Suspect]
     Active Substance: CYCLOPHOSPHAMIDE
     Indication: LEUKAEMIA
     Dosage: 280 MG, UNK
     Route: 042
  14. FLUDARABINE [Concomitant]
     Active Substance: FLUDARABINE PHOSPHATE
     Dosage: UNK
  15. VINCRISTINE SULFATE. [Concomitant]
     Active Substance: VINCRISTINE SULFATE
     Dosage: UNK

REACTIONS (2)
  - Cardiotoxicity [Unknown]
  - Ejection fraction decreased [Unknown]
